FAERS Safety Report 12465638 (Version 2)
Quarter: 2016Q2

REPORT INFORMATION
  Report Type: Spontaneous
  Country: FR (occurrence: FR)
  Receive Date: 20160614
  Receipt Date: 20160627
  Transmission Date: 20160815
  Serious: Yes (Other)
  Sender: FDA-Public Use
  Company Number: FR-WATSON-2016-12287

PATIENT
  Age: 66 Year
  Sex: Female

DRUGS (1)
  1. CHLOROQUINE. [Suspect]
     Active Substance: CHLOROQUINE
     Indication: MALARIA PROPHYLAXIS
     Dosage: 100 MG, DAILY
     Route: 065

REACTIONS (2)
  - Bundle branch block left [Recovered/Resolved]
  - Angina pectoris [Recovered/Resolved]
